FAERS Safety Report 7006049-7 (Version None)
Quarter: 2010Q3

REPORT INFORMATION
  Report Type: 
  Country: None (occurrence: None)
  Receive Date: 20100921
  Receipt Date: 20100917
  Transmission Date: 20110219
  Serious: Yes (Other)
  Sender: FDA-Public Use
  Company Number: BR-ROXANE LABORATORIES, INC.-2010-RO-01240RO

PATIENT
  Age: 33 Year
  Sex: Female

DRUGS (7)
  1. DIAZEPAM [Suspect]
     Indication: IMPULSIVE BEHAVIOUR
     Dosage: 10 MG
  2. DIAZEPAM [Suspect]
     Indication: AGGRESSION
  3. RISPERIDONE [Suspect]
     Indication: IMPULSIVE BEHAVIOUR
     Dosage: 2 MG
  4. RISPERIDONE [Suspect]
     Indication: AGGRESSION
  5. HALOPERIDOL [Suspect]
     Indication: IMPULSIVE BEHAVIOUR
     Dosage: 10 MG
  6. HALOPERIDOL [Suspect]
     Indication: AGGRESSION
  7. TRIHEXYPHENIDYL HCL [Suspect]
     Indication: PLEUROTHOTONUS

REACTIONS (4)
  - AGGRESSION [None]
  - DRUG INEFFECTIVE [None]
  - IMPULSIVE BEHAVIOUR [None]
  - PLEUROTHOTONUS [None]
